FAERS Safety Report 25172945 (Version 1)
Quarter: 2025Q2

REPORT INFORMATION
  Report Type: Spontaneous
  Country: US (occurrence: US)
  Receive Date: 20250408
  Receipt Date: 20250408
  Transmission Date: 20250716
  Serious: No
  Sender: PFIZER
  Company Number: US-PFIZER INC-202500070522

PATIENT
  Sex: Female

DRUGS (1)
  1. GLUCOTROL XL [Suspect]
     Active Substance: GLIPIZIDE
     Indication: Diabetes mellitus

REACTIONS (1)
  - Hypoglycaemia [Unknown]
